FAERS Safety Report 24761501 (Version 1)
Quarter: 2024Q4

REPORT INFORMATION
  Report Type: Spontaneous
  Country: CH (occurrence: CH)
  Receive Date: 20241220
  Receipt Date: 20241220
  Transmission Date: 20250114
  Serious: Yes (Other)
  Sender: BRISTOL-MYERS SQUIBB COMPANY
  Company Number: None

PATIENT
  Age: 49 Year
  Sex: Male
  Weight: 115 kg

DRUGS (8)
  1. YERVOY [Suspect]
     Active Substance: IPILIMUMAB
     Indication: Melanoma recurrent
     Route: 040
     Dates: start: 20241025, end: 20241025
  2. OPDIVO [Suspect]
     Active Substance: NIVOLUMAB
     Indication: Melanoma recurrent
     Route: 040
     Dates: start: 20241025, end: 20241025
  3. PEMBROLIZUMAB [Suspect]
     Active Substance: PEMBROLIZUMAB
     Indication: Melanoma recurrent
     Dosage: 200 MG EVERY 3 WEEKS (5 DOSES)
     Route: 040
     Dates: start: 202405, end: 20240715
  4. DABRAFENIB [Suspect]
     Active Substance: DABRAFENIB
     Indication: Melanoma recurrent
     Route: 048
     Dates: start: 20240716, end: 20240908
  5. TRAMETINIB [Suspect]
     Active Substance: TRAMETINIB
     Indication: Melanoma recurrent
     Route: 048
     Dates: start: 20240716, end: 20240908
  6. PANTOPRAZOLE [Concomitant]
     Active Substance: PANTOPRAZOLE
     Indication: Product used for unknown indication
     Dosage: LONG TERM TREATMENT
     Route: 048
  7. ACETAMINOPHEN [Concomitant]
     Active Substance: ACETAMINOPHEN
     Indication: Product used for unknown indication
     Dosage: LONG TERM TREATMENT
     Route: 048
  8. IBUPROFEN [Concomitant]
     Active Substance: IBUPROFEN
     Indication: Product used for unknown indication
     Dosage: LONG TERM TREATMENT
     Route: 048

REACTIONS (1)
  - Uveitis [Unknown]

NARRATIVE: CASE EVENT DATE: 20241105
